FAERS Safety Report 18188803 (Version 1)
Quarter: 2020Q3

REPORT INFORMATION
  Report Type: Spontaneous
  Country: CA (occurrence: CA)
  Receive Date: 20200825
  Receipt Date: 20200825
  Transmission Date: 20201103
  Serious: Yes (Life-Threatening, Hospitalization)
  Sender: FDA-Public Use
  Company Number: CA-PFIZER INC-2020324118

PATIENT
  Age: 55 Year
  Sex: Female
  Weight: 69 kg

DRUGS (18)
  1. AMLODIPINE BESILATE [Concomitant]
     Active Substance: AMLODIPINE BESYLATE
  2. AMLODIPINE BESILATE/CANDESARTAN CILEXETIL [Concomitant]
     Active Substance: AMLODIPINE BESYLATE\CANDESARTAN CILEXETIL
     Dosage: 1 DF
  3. ASA [Concomitant]
     Active Substance: ASPIRIN
     Dosage: 80 MG
  4. IRBESARTAN SANDOZ [Suspect]
     Active Substance: IRBESARTAN
     Indication: HYPERTENSION
     Dosage: 300 MG, 1X/DAY
     Route: 048
  5. ALISKIREN FUMARATE [Suspect]
     Active Substance: ALISKIREN HEMIFUMARATE
     Indication: MICROALBUMINURIA
     Dosage: 150 MG, 1X/DAY
     Route: 048
  6. ALISKIREN FUMARATE [Suspect]
     Active Substance: ALISKIREN HEMIFUMARATE
     Indication: HYPERTENSION
     Dosage: UNK
     Route: 048
  7. ALISKIREN [Suspect]
     Active Substance: ALISKIREN
     Indication: HYPERTENSION
     Dosage: 150 MG, 1X/DAY
  8. ACETYLSALICYLIC ACID [Suspect]
     Active Substance: ASPIRIN
     Dosage: 80 MG, 1X/DAY
  9. AMLODIPINE BESILATE [Suspect]
     Active Substance: AMLODIPINE BESYLATE
     Dosage: 5 MG, 1X/DAY
     Route: 048
  10. ALISKIREN FUMARATE [Suspect]
     Active Substance: ALISKIREN HEMIFUMARATE
     Dosage: UNK
     Route: 048
  11. ESOMEPRAZOLE. [Concomitant]
     Active Substance: ESOMEPRAZOLE MAGNESIUM
     Dosage: 40 MG
  12. LIPITOR [Suspect]
     Active Substance: ATORVASTATIN CALCIUM
     Dosage: 20 MG, 1X/DAY
     Route: 048
  13. ESOMEPRAZOLE MAGNESIUM TRIHYDRATE [Suspect]
     Active Substance: ESOMEPRAZOLE MAGNESIUM
     Dosage: 40 MG, 1X/DAY
     Route: 048
  14. AVAPRO [Concomitant]
     Active Substance: IRBESARTAN
     Dosage: 1 DF
     Route: 048
  15. METFORMIN [Suspect]
     Active Substance: METFORMIN HYDROCHLORIDE
     Dosage: 850 MG, 3X/DAY
     Route: 048
  16. JANUVIA [Suspect]
     Active Substance: SITAGLIPTIN PHOSPHATE
     Dosage: 100 MG, 1X/DAY
     Route: 048
  17. IRBESARTAN. [Suspect]
     Active Substance: IRBESARTAN
     Indication: HYPERTENSION
     Dosage: 1 DF, 1X/DAY
     Route: 048
  18. GLUCOPHAGE [Concomitant]
     Active Substance: METFORMIN HYDROCHLORIDE
     Route: 048

REACTIONS (22)
  - Aphasia [Unknown]
  - Muscle spasticity [Unknown]
  - Nausea [Unknown]
  - Personality disorder [Unknown]
  - Fall [Unknown]
  - Asthenia [Unknown]
  - Carotid artery thrombosis [Unknown]
  - Muscular weakness [Unknown]
  - Dysarthria [Unknown]
  - Sensory loss [Unknown]
  - Adjustment disorder [Unknown]
  - Confusional state [Unknown]
  - Dysphagia [Unknown]
  - Hemiparesis [Unknown]
  - Coordination abnormal [Unknown]
  - Neurologic neglect syndrome [Unknown]
  - Affect lability [Unknown]
  - Hemiplegia [Unknown]
  - Anxiety [Unknown]
  - Cerebrovascular accident [Unknown]
  - Eating disorder [Unknown]
  - Motor dysfunction [Unknown]
